FAERS Safety Report 6864407-5 (Version None)
Quarter: 2010Q3

REPORT INFORMATION
  Report Type: 
  Country: None (occurrence: None)
  Receive Date: 20100721
  Receipt Date: 20080403
  Transmission Date: 20110219
  Serious: No
  Sender: FDA-Public Use
  Company Number: US-PFIZER INC-2008026018

PATIENT
  Sex: Female
  Weight: 77.1 kg

DRUGS (7)
  1. CHANTIX [Suspect]
     Indication: SMOKING CESSATION THERAPY
     Dates: start: 20080301, end: 20080331
  2. WELLBUTRIN [Concomitant]
  3. IMIPRAMINE [Concomitant]
  4. KLONOPIN [Concomitant]
  5. RISPERDAL [Concomitant]
  6. LIPITOR [Concomitant]
  7. GABAPENTIN [Concomitant]

REACTIONS (4)
  - ANXIETY [None]
  - BRUXISM [None]
  - DRUG DOSE OMISSION [None]
  - INCORRECT DOSE ADMINISTERED [None]
